FAERS Safety Report 17029189 (Version 1)
Quarter: 2019Q4

REPORT INFORMATION
  Report Type: Spontaneous
  Country: ES (occurrence: ES)
  Receive Date: 20191114
  Receipt Date: 20191114
  Transmission Date: 20200122
  Serious: Yes (Other)
  Sender: FDA-Public Use
  Company Number: ES-AMGEN-ESPSP2019185573

PATIENT
  Age: 61 Year
  Sex: Female

DRUGS (6)
  1. KYPROLIS [Suspect]
     Active Substance: CARFILZOMIB
     Dosage: 27 MILLIGRAM/SQ. METER, ON DAYS 1, 2, 8, 9, 15, 16 OF CYCLES 2 - 12
     Route: 042
  2. LENALIDOMIDE [Suspect]
     Active Substance: LENALIDOMIDE
     Indication: PLASMA CELL MYELOMA
     Dosage: 25 MILLIGRAM, QD, FOR 21 DAYS / 20 MG/DAY AS OF DAY 1 OF CYCLE 4
     Route: 048
     Dates: start: 20170327
  3. DEXAMETHASONE. [Concomitant]
     Active Substance: DEXAMETHASONE
     Indication: PLASMA CELL MYELOMA
     Dosage: 40 MILLIGRAM, ON DAYS 1, 8, 15, AND 22 OF EACH CYCLE / 4 MILLIGRAM (IV)
     Route: 048
     Dates: start: 20170327
  4. KYPROLIS [Suspect]
     Active Substance: CARFILZOMIB
     Indication: PLASMA CELL MYELOMA
     Dosage: 20 MILLIGRAM/SQ. METER, ON DAYS 1 AND 2 OF CYCLE 1
     Route: 042
     Dates: start: 20170327
  5. KYPROLIS [Suspect]
     Active Substance: CARFILZOMIB
     Dosage: 27 MILLIGRAM/SQ. METER ON DAYS 1, 2, 15, AND 16 AS OF CYCLE 13
     Route: 042
  6. KYPROLIS [Suspect]
     Active Substance: CARFILZOMIB
     Dosage: 27 MILLIGRAM/SQ. METER, ON DAYS 8, 9, 15, AND 16 OF CYCLE 1
     Route: 042

REACTIONS (11)
  - Neutropenia [Unknown]
  - Blood creatinine increased [Unknown]
  - Hypokalaemia [Unknown]
  - Glomerular filtration rate decreased [Unknown]
  - Hypertension [Unknown]
  - Vomiting [Unknown]
  - Dehydration [Unknown]
  - Rash [Unknown]
  - Face oedema [Unknown]
  - Nephrolithiasis [Unknown]
  - Thrombocytopenia [Unknown]
